FAERS Safety Report 17157539 (Version 1)
Quarter: 2019Q4

REPORT INFORMATION
  Report Type: Spontaneous
  Country: US (occurrence: US)
  Receive Date: 20191213
  Receipt Date: 20191213
  Transmission Date: 20200122
  Serious: Yes (Other)
  Sender: FDA-Public Use
  Company Number: None

PATIENT
  Age: 58 Year
  Sex: Male
  Weight: 92.25 kg

DRUGS (2)
  1. CLENPIQ [Suspect]
     Active Substance: ANHYDROUS CITRIC ACID\MAGNESIUM OXIDE\SODIUM PICOSULFATE
     Indication: BOWEL PREPARATION
     Route: 048
     Dates: start: 20190925, end: 20190926
  2. LOSARTAN 100MG [Concomitant]
     Active Substance: LOSARTAN

REACTIONS (5)
  - Diarrhoea [None]
  - Throat irritation [None]
  - Rectal haemorrhage [None]
  - Dyspepsia [None]
  - Muscle spasms [None]

NARRATIVE: CASE EVENT DATE: 20190926
